FAERS Safety Report 6995945-2 (Version None)
Quarter: 2010Q3

REPORT INFORMATION
  Report Type: 
  Country: None (occurrence: None)
  Receive Date: 20100918
  Receipt Date: 20090604
  Transmission Date: 20110219
  Serious: No
  Sender: FDA-Public Use
  Company Number: US-WYE-H05673708

PATIENT
  Age: 53 Year
  Sex: Female
  Weight: 59.02 kg

DRUGS (4)
  1. PREMPRO [Suspect]
     Indication: HORMONE REPLACEMENT THERAPY
     Dosage: ONE TABLET ON WEDNESDAY AND SUNDAY AND ONLY A HALF TABLET FOR THE REMAINDER OF THE WEEK
     Route: 048
     Dates: start: 20060101
  2. ALEVE (CAPLET) [Concomitant]
  3. BELLADONNA [Concomitant]
  4. FLEXERIL [Concomitant]

REACTIONS (5)
  - CHEST DISCOMFORT [None]
  - FEELING ABNORMAL [None]
  - FEELING COLD [None]
  - SENSATION OF HEAVINESS [None]
  - WEIGHT INCREASED [None]
